FAERS Safety Report 12574798 (Version 1)
Quarter: 2016Q3

REPORT INFORMATION
  Report Type: Spontaneous
  Country: US (occurrence: US)
  Receive Date: 20160720
  Receipt Date: 20160720
  Transmission Date: 20161109
  Serious: No
  Sender: FDA-Public Use
  Company Number: US-ASTELLAS-2015US027767

PATIENT
  Sex: Female

DRUGS (2)
  1. VESICARE [Suspect]
     Active Substance: SOLIFENACIN SUCCINATE
     Dosage: UNK, UNKNOWN FREQ. (THREE YEARS AGO)
     Route: 065
     Dates: start: 2012
  2. VESICARE [Suspect]
     Active Substance: SOLIFENACIN SUCCINATE
     Indication: HYPERTONIC BLADDER
     Route: 065
     Dates: start: 201504

REACTIONS (2)
  - Drug effect incomplete [Unknown]
  - Pollakiuria [Recovering/Resolving]
